FAERS Safety Report 15936462 (Version 4)
Quarter: 2019Q1

REPORT INFORMATION
  Report Type: Spontaneous
  Country: FR (occurrence: FR)
  Receive Date: 20190208
  Receipt Date: 20190319
  Transmission Date: 20190417
  Serious: Yes (Death, Congenital Anomaly, Other)
  Sender: FDA-Public Use
  Company Number: FR-SA-2019SA035650

PATIENT
  Age: 4 Day
  Sex: Male
  Weight: .45 kg

DRUGS (1)
  1. AUBAGIO [Suspect]
     Active Substance: TERIFLUNOMIDE
     Indication: FOETAL EXPOSURE DURING PREGNANCY
     Dosage: 14 MG, QD
     Route: 064

REACTIONS (9)
  - Foetal growth restriction [Fatal]
  - Foetal placental thrombosis [Fatal]
  - Bone deformity [Fatal]
  - Foetal malformation [Fatal]
  - Umbilical cord abnormality [Fatal]
  - Congenital nose malformation [Fatal]
  - Vascular malformation [Fatal]
  - Placental infarction [Fatal]
  - Exposure during pregnancy [Fatal]
